FAERS Safety Report 15328210 (Version 2)
Quarter: 2018Q4

REPORT INFORMATION
  Report Type: Spontaneous
  Country: US (occurrence: US)
  Receive Date: 20180829
  Receipt Date: 20181017
  Transmission Date: 20190204
  Serious: Yes (Hospitalization, Other)
  Sender: FDA-Public Use
  Company Number: US-AUROBINDO-AUR-APU-2018-042532

PATIENT
  Age: 81 Year
  Sex: Male
  Weight: 113.37 kg

DRUGS (1)
  1. LOSARTAN POTASSIUM TABLETS USP 50MG [Suspect]
     Active Substance: LOSARTAN POTASSIUM
     Indication: HYPERTENSION
     Dosage: 1 TABLET PER DAY
     Route: 065
     Dates: start: 20180805, end: 20180806

REACTIONS (4)
  - Cardiac failure [Recovered/Resolved]
  - Hepatic pain [Recovered/Resolved]
  - Food poisoning [Recovered/Resolved]
  - Blood pressure increased [Recovered/Resolved]

NARRATIVE: CASE EVENT DATE: 20180805
